FAERS Safety Report 16075102 (Version 4)
Quarter: 2021Q1

REPORT INFORMATION
  Report Type: Spontaneous
  Country: JP (occurrence: JP)
  Receive Date: 20190315
  Receipt Date: 20210204
  Transmission Date: 20210419
  Serious: Yes (Other)
  Sender: FDA-Public Use
  Company Number: JP-ROCHE-2282580

PATIENT
  Age: 66 Year
  Sex: Male

DRUGS (9)
  1. XOLAIR [Suspect]
     Active Substance: OMALIZUMAB
     Indication: ASTHMA
     Route: 058
     Dates: start: 20141002, end: 20160912
  2. PREDONINE [Concomitant]
     Active Substance: PREDNISOLONE
     Indication: ASTHMA
     Dosage: 30 MG, UNK
     Route: 048
     Dates: start: 20140927
  3. ONON [Concomitant]
     Active Substance: PRANLUKAST
     Indication: ASTHMA
     Dosage: 225 MG, UNK
     Route: 048
     Dates: start: 20100204
  4. MUCODYNE [Concomitant]
     Active Substance: CARBOCYSTEINE
     Indication: ASTHMA
     Dosage: 500 MG, UNK
     Route: 048
     Dates: start: 20100621
  5. BROTIZOLAM [Concomitant]
     Active Substance: BROTIZOLAM
     Indication: INSOMNIA
     Dosage: 0.25 MG, UNK
     Route: 048
     Dates: start: 20140930, end: 20141003
  6. SYMBICORT [Concomitant]
     Active Substance: BUDESONIDE\FORMOTEROL FUMARATE DIHYDRATE
     Indication: ASTHMA
     Dosage: 1 DF
     Dates: start: 20100311
  7. MUCOSOLVAN [Concomitant]
     Active Substance: AMBROXOL HYDROCHLORIDE
     Indication: ASTHMA
     Dosage: 45 MG, UNK
     Route: 048
     Dates: start: 20100524
  8. SYMBICORT [Concomitant]
     Active Substance: BUDESONIDE\FORMOTEROL FUMARATE DIHYDRATE
     Dosage: 4 DF
     Dates: start: 20100311
  9. GLACTIV [Concomitant]
     Active Substance: SITAGLIPTIN
     Indication: DIABETES MELLITUS
     Dosage: 25 MG, UNK
     Route: 048
     Dates: start: 20141031

REACTIONS (3)
  - Therapeutic product effect incomplete [Unknown]
  - Concomitant disease aggravated [Recovering/Resolving]
  - Eosinophilic otitis media [Recovering/Resolving]
